FAERS Safety Report 20474684 (Version 1)
Quarter: 2022Q1

REPORT INFORMATION
  Report Type: Spontaneous
  Country: US (occurrence: None)
  Receive Date: 20220214
  Receipt Date: 20220214
  Transmission Date: 20220423
  Serious: Yes (Hospitalization)
  Sender: FDA-Public Use
  Company Number: None

PATIENT
  Sex: Female
  Weight: 65 kg

DRUGS (12)
  1. WELIREG [Suspect]
     Active Substance: BELZUTIFAN
  2. NOVOLOG [Concomitant]
     Active Substance: INSULIN ASPART
  3. ONDANSETRON [Concomitant]
     Active Substance: ONDANSETRON
  4. AMLODIPINE [Concomitant]
     Active Substance: AMLODIPINE BESYLATE
  5. ASCORBIC ACID\BIOTIN\CALCIUM PANTOTHENATE\CYANOCOBALAMIN\FOLIC ACID\NI [Concomitant]
     Active Substance: ASCORBIC ACID\BIOTIN\CALCIUM PANTOTHENATE\CYANOCOBALAMIN\FOLIC ACID\NIACINAMIDE\PYRIDOXINE HYDROCHLO
  6. OXCARBAZEPINE [Concomitant]
     Active Substance: OXCARBAZEPINE
  7. LANTUS [Concomitant]
     Active Substance: INSULIN GLARGINE
  8. PANTOPRAZOLE [Concomitant]
     Active Substance: PANTOPRAZOLE
  9. CEVIMELINE [Concomitant]
     Active Substance: CEVIMELINE
  10. METOPROLOL [Concomitant]
     Active Substance: METOPROLOL
  11. INSULIN ASPART [Concomitant]
     Active Substance: INSULIN ASPART
  12. CREON [Concomitant]
     Active Substance: PANCRELIPASE AMYLASE\PANCRELIPASE LIPASE\PANCRELIPASE PROTEASE

REACTIONS (2)
  - Heart rate decreased [None]
  - Blood pressure decreased [None]
